FAERS Safety Report 8110636-2 (Version None)
Quarter: 2012Q1

REPORT INFORMATION
  Report Type: 
  Country: None (occurrence: None)
  Receive Date: 20120203
  Receipt Date: 20120130
  Transmission Date: 20120608
  Serious: Yes (Hospitalization)
  Sender: FDA-Public Use
  Company Number: US-SHIRE-ALL1-2011-03843

PATIENT
  Sex: Female
  Weight: 79.048 kg

DRUGS (6)
  1. LIALDA [Suspect]
     Indication: COLITIS ULCERATIVE
     Dosage: 4.8 G, (FOUR 1.2 G TABLETS)1X/DAY:QD
     Route: 048
     Dates: start: 20100101, end: 20110101
  2. PREDNISONE TAB [Concomitant]
     Dosage: UNK, UNKNOWN (DOSE INCREASED TO UNKNOWN MG)
     Route: 065
     Dates: start: 20110101
  3. PREDNISONE TAB [Concomitant]
     Indication: PRODUCT USED FOR UNKNOWN INDICATION
     Dosage: UNK, UNKNOWN
     Route: 065
  4. MULTI-VITAMINS [Concomitant]
     Indication: SUPPLEMENTATION THERAPY
     Dosage: UNK, UNKNOWN
     Route: 065
     Dates: start: 20110901
  5. TOPROL-XL [Concomitant]
     Indication: ATRIAL FIBRILLATION
     Dosage: 50 MG, 1X/DAY:QD
     Route: 048
  6. COUMADIN [Concomitant]
     Indication: ATRIAL FIBRILLATION
     Dosage: 2 MG, 1X/DAY:QD
     Route: 048

REACTIONS (8)
  - LARGE INTESTINE PERFORATION [None]
  - MEGACOLON [None]
  - DEPRESSION [None]
  - MALNUTRITION [None]
  - ORGANISING PNEUMONIA [None]
  - VITAMIN D DECREASED [None]
  - COLITIS [None]
  - DEHYDRATION [None]
